FAERS Safety Report 5788433-2 (Version None)
Quarter: 2008Q2

REPORT INFORMATION
  Report Type: 
  Country: None (occurrence: None)
  Receive Date: 20080625
  Receipt Date: 20080616
  Transmission Date: 20081010
  Serious: Yes (Other)
  Sender: FDA-Public Use
  Company Number: DE-ALLERGAN-0807264US

PATIENT
  Sex: Male

DRUGS (17)
  1. BOTOX [Suspect]
     Indication: PROPHYLAXIS
     Dosage: UNK, SINGLE
     Route: 030
     Dates: start: 20080101, end: 20080101
  2. ISOPTO-MAX [Suspect]
     Indication: CORNEAL EROSION
     Dosage: UNK, UNK
     Route: 047
     Dates: start: 20071101
  3. COSOPT [Suspect]
     Indication: CORNEAL EROSION
     Dosage: UNK, TID
     Route: 047
     Dates: start: 20071101
  4. XALATAN [Suspect]
     Indication: CORNEAL EROSION
     Dosage: UNK, UNK
     Route: 047
     Dates: start: 20071201
  5. ACTIHAEMYL [Suspect]
     Indication: CORNEAL EROSION
     Route: 047
     Dates: start: 20080129
  6. KANAMYTREX [Suspect]
     Indication: CORNEAL EROSION
     Dosage: UNK, UNK
     Route: 047
     Dates: start: 20080129
  7. ACIC-OPHTAL [Suspect]
     Indication: CORNEAL EROSION
     Route: 047
     Dates: start: 20080102
  8. BORO-SKOPOL [Suspect]
     Indication: CORNEAL EROSION
     Dosage: UNK, UNK
     Route: 047
     Dates: start: 20080102
  9. DEXA-GEL [Suspect]
     Indication: CORNEAL EROSION
     Route: 047
     Dates: start: 20080104
  10. CORNEREGEL [Suspect]
     Indication: CORNEAL EROSION
     Dates: start: 20080104
  11. TIM-OPHTAL [Suspect]
     Indication: CORNEAL EROSION
     Route: 047
     Dates: start: 20080104
  12. KANAMYTREX [Suspect]
     Route: 047
     Dates: start: 20080130
  13. FLOXAL [Suspect]
     Indication: CORNEAL EROSION
     Route: 047
     Dates: start: 20080201
  14. TOBRAMAXIN [Suspect]
     Indication: CORNEAL EROSION
     Route: 047
     Dates: start: 20080201
  15. TOBRADEX [Suspect]
     Indication: CORNEAL EROSION
     Route: 047
     Dates: start: 20080214
  16. OPHTAQUIX [Suspect]
     Indication: CORNEAL EROSION
     Route: 047
     Dates: start: 20080227
  17. FLOXAL EDO [Suspect]
     Indication: CORNEAL EROSION
     Route: 047
     Dates: start: 20080301

REACTIONS (2)
  - CORNEAL DEPOSITS [None]
  - CORNEAL INFILTRATES [None]
